FAERS Safety Report 4475003-1 (Version None)
Quarter: 2004Q3

REPORT INFORMATION
  Report Type: 
  Country: None (occurrence: None)
  Receive Date: 20040923
  Receipt Date: 20040629
  Transmission Date: 20050211
  Serious: No
  Sender: FDA-Public Use
  Company Number: USA040671367

PATIENT
  Age: 78 Year
  Sex: Female
  Weight: 48 kg

DRUGS (3)
  1. FORTEO [Suspect]
     Indication: OSTEOPOROSIS
     Dates: start: 20040401, end: 20040420
  2. EVISTA [Suspect]
     Indication: OSTEOPOROSIS
     Dosage: 60 MG/1 DAY
     Dates: start: 20030601
  3. CALCIUM CARBONATE W/VITAMIN D NOS [Concomitant]

REACTIONS (8)
  - BONE DENSITY DECREASED [None]
  - BRONCHITIS [None]
  - CHOKING [None]
  - COUGH [None]
  - DYSPNOEA [None]
  - PHARYNGOLARYNGEAL PAIN [None]
  - SINUS PAIN [None]
  - SINUSITIS [None]
